FAERS Safety Report 5143214-8 (Version None)
Quarter: 2006Q4

REPORT INFORMATION
  Report Type: 
  Country: None (occurrence: None)
  Receive Date: 20061030
  Receipt Date: 20061016
  Transmission Date: 20070319
  Serious: Yes (Life-Threatening, Other)
  Sender: FDA-Public Use
  Company Number: 2006007143

PATIENT
  Age: 64 Year
  Sex: Male

DRUGS (2)
  1. IRINOTECAN HCL [Suspect]
     Indication: ILL-DEFINED DISORDER
     Dosage: (100 MG), INTRAVENOUS
     Route: 042
     Dates: start: 20051020, end: 20051102
  2. NEDAPLATIN (NEDAPLATIN) [Suspect]
     Dosage: (40 MG), INTRAVENOUS
     Route: 042
     Dates: start: 20051020, end: 20051102

REACTIONS (4)
  - ACUTE RESPIRATORY FAILURE [None]
  - INTERSTITIAL LUNG DISEASE [None]
  - LEUKOPENIA [None]
  - NEUTROPENIA [None]
